FAERS Safety Report 20289180 (Version 1)
Quarter: 2022Q1

REPORT INFORMATION
  Report Type: Spontaneous
  Country: US (occurrence: US)
  Receive Date: 20220104
  Receipt Date: 20220104
  Transmission Date: 20220423
  Serious: No
  Sender: FDA-Public Use
  Company Number: US-APOTEX-2021AP009512

PATIENT
  Sex: Male

DRUGS (1)
  1. PAROXETINE [Suspect]
     Active Substance: PAROXETINE
     Indication: Product used for unknown indication
     Dosage: 1 PILLS, QD
     Route: 065

REACTIONS (7)
  - Vertigo [Unknown]
  - Head discomfort [Unknown]
  - Muscular weakness [Unknown]
  - Personal relationship issue [Unknown]
  - Tinnitus [Unknown]
  - Nausea [Unknown]
  - Withdrawal syndrome [Unknown]
